FAERS Safety Report 5376269-6 (Version None)
Quarter: 2007Q3

REPORT INFORMATION
  Report Type: 
  Country: None (occurrence: None)
  Receive Date: 20070702
  Receipt Date: 20070622
  Transmission Date: 20080115
  Serious: Yes (Disabling)
  Sender: FDA-Public Use
  Company Number: BR-ROCHE-504213

PATIENT
  Age: 55 Year
  Sex: Female

DRUGS (5)
  1. VALIUM [Suspect]
     Indication: EPILEPSY
     Dosage: DOSING FREQUENCY: AS NECESSARY
     Route: 048
     Dates: start: 19950601
  2. VOLTAREN [Suspect]
     Indication: BACK PAIN
     Route: 065
  3. SALICIN [Concomitant]
     Dosage: INDICATION: FOR BLOOD
  4. GLIBENCLAMIDE [Concomitant]
  5. LISINOPRIL [Concomitant]
     Dosage: TRADE NAME REPORTED AS CAPTOPTIL

REACTIONS (1)
  - CEREBROVASCULAR ACCIDENT [None]
